FAERS Safety Report 6639626-3 (Version None)
Quarter: 2010Q1

REPORT INFORMATION
  Report Type: 
  Country: None (occurrence: None)
  Receive Date: 20100301
  Receipt Date: 20090810
  Transmission Date: 20100710
  Serious: Yes (Hospitalization, Other)
  Sender: FDA-Public Use
  Company Number: RB-19059-2009

PATIENT
  Age: 59 Year
  Sex: Male

DRUGS (1)
  1. SUBOXONE [Suspect]
     Indication: DRUG USE FOR UNKNOWN INDICATION

REACTIONS (5)
  - ANXIETY [None]
  - DIVERTICULITIS [None]
  - EMPHYSEMA [None]
  - PAIN [None]
  - SINUSITIS [None]
